FAERS Safety Report 15219837 (Version 1)
Quarter: 2018Q3

REPORT INFORMATION
  Report Type: Spontaneous
  Country: PL (occurrence: PL)
  Receive Date: 20180731
  Receipt Date: 20180731
  Transmission Date: 20181010
  Serious: Yes (Other)
  Sender: FDA-Public Use
  Company Number: PL-AMGEN-POLSP2018101648

PATIENT
  Age: 64 Year
  Sex: Female

DRUGS (6)
  1. PEGFILGRASTIM [Suspect]
     Active Substance: PEGFILGRASTIM
     Indication: PROPHYLAXIS
     Dosage: UNK
     Route: 065
  2. VINCRISTINE [Concomitant]
     Active Substance: VINCRISTINE
     Indication: UTERINE CANCER
     Dosage: UNK UNK, Q3WK
  3. RITUXIMAB. [Concomitant]
     Active Substance: RITUXIMAB
     Indication: UTERINE CANCER
     Dosage: UNK UNK, Q3WK
  4. DOXORUBICIN [Concomitant]
     Active Substance: DOXORUBICIN
     Indication: UTERINE CANCER
     Dosage: UNK UNK, Q3WK
  5. PREDNISONE. [Concomitant]
     Active Substance: PREDNISONE
     Indication: UTERINE CANCER
     Dosage: UNK UNK, Q3WK
  6. CYCLOPHOSPHAMIDE. [Concomitant]
     Active Substance: CYCLOPHOSPHAMIDE
     Indication: UTERINE CANCER
     Dosage: UNK UNK, Q3WK

REACTIONS (8)
  - Abscess intestinal [Unknown]
  - Drug ineffective [Unknown]
  - General physical health deterioration [Unknown]
  - Abdominal pain [Unknown]
  - Pneumonia [Unknown]
  - Febrile neutropenia [Unknown]
  - Uterine enlargement [Unknown]
  - Hydrometra [Unknown]
